FAERS Safety Report 16787077 (Version 1)
Quarter: 2019Q3

REPORT INFORMATION
  Report Type: Spontaneous
  Country: US (occurrence: US)
  Receive Date: 20190909
  Receipt Date: 20190909
  Transmission Date: 20191005
  Serious: No
  Sender: FDA-Public Use
  Company Number: US-SA-2019SA245206

PATIENT
  Age: 15 Year
  Sex: Female
  Weight: 72.5 kg

DRUGS (10)
  1. B COMPLEX [VITAMIN B COMPLEX] [Concomitant]
  2. DUPIXENT [Suspect]
     Active Substance: DUPILUMAB
     Dosage: 300 MG, QOW
     Route: 058
     Dates: start: 20190728
  3. DAPSONE. [Concomitant]
     Active Substance: DAPSONE
  4. METHOTREXATE. [Concomitant]
     Active Substance: METHOTREXATE
  5. SPRINTEC [Concomitant]
     Active Substance: ETHINYL ESTRADIOL\NORGESTIMATE
  6. LEUCOVORIN CALCIUM. [Concomitant]
     Active Substance: LEUCOVORIN CALCIUM
  7. BETA CAROTENE. [Concomitant]
     Active Substance: BETA CAROTENE
  8. CALCIUM CARBONATE. [Concomitant]
     Active Substance: CALCIUM CARBONATE
  9. PROBIOTIC BLEND [Concomitant]
  10. VITAMIN D3 [Concomitant]
     Active Substance: CHOLECALCIFEROL

REACTIONS (2)
  - Dermatitis [Not Recovered/Not Resolved]
  - Pruritus generalised [Not Recovered/Not Resolved]
